FAERS Safety Report 4442284-X (Version None)
Quarter: 2004Q3

REPORT INFORMATION
  Report Type: 
  Country: None (occurrence: None)
  Receive Date: 20040903
  Receipt Date: 20040507
  Transmission Date: 20050211
  Serious: Yes (Other)
  Sender: FDA-Public Use
  Company Number: 2004UW07254

PATIENT
  Age: 77 Year
  Sex: Female
  Weight: 58.0604 kg

DRUGS (15)
  1. CRESTOR [Suspect]
     Indication: BLOOD CHOLESTEROL INCREASED
     Dosage: 10 MG PO
     Route: 048
     Dates: start: 20030910
  2. CRESTOR [Suspect]
     Indication: BLOOD CHOLESTEROL INCREASED
  3. BEXTRA [Concomitant]
  4. PREDNISONE [Concomitant]
  5. FOSAMAX [Concomitant]
  6. SYNTHROID [Concomitant]
  7. DOXEPIN HCL [Concomitant]
  8. PRILOSEC [Concomitant]
  9. CITRACAL + D [Concomitant]
  10. VITAMIN E [Concomitant]
  11. VITAMIN C [Concomitant]
  12. MULTIVITAMIN [Concomitant]
  13. FIBERALL [Concomitant]
  14. GLUCOSAMINE [Concomitant]
  15. TYLENOL [Concomitant]

REACTIONS (3)
  - DYSPEPSIA [None]
  - ERUCTATION [None]
  - FLATULENCE [None]
